FAERS Safety Report 15799485 (Version 1)
Quarter: 2019Q1

REPORT INFORMATION
  Report Type: Spontaneous
  Country: US (occurrence: US)
  Receive Date: 20190108
  Receipt Date: 20190108
  Transmission Date: 20190417
  Serious: No
  Sender: FDA-Public Use
  Company Number: US-ASTRAZENECA-2018SF69033

PATIENT
  Sex: Male
  Weight: 88.5 kg

DRUGS (4)
  1. METFORMIN [Concomitant]
     Active Substance: METFORMIN HYDROCHLORIDE
  2. LANTUS [Concomitant]
     Active Substance: INSULIN GLARGINE
     Dosage: 22 UNITS DAILY
     Route: 058
  3. HUMALOG [Concomitant]
     Active Substance: INSULIN LISPRO
     Indication: TYPE 2 DIABETES MELLITUS
  4. BYDUREON BCISE [Suspect]
     Active Substance: EXENATIDE
     Indication: TYPE 2 DIABETES MELLITUS
     Dosage: 2.0MG UNKNOWN
     Route: 058
     Dates: start: 2018

REACTIONS (7)
  - Injection site bruising [Unknown]
  - Injection site haemorrhage [Unknown]
  - Injection site mass [Not Recovered/Not Resolved]
  - Flatulence [Unknown]
  - Injection site extravasation [Unknown]
  - Eructation [Unknown]
  - Device issue [Unknown]
